FAERS Safety Report 9413881 (Version 1)
Quarter: 2013Q3

REPORT INFORMATION
  Report Type: Spontaneous
  Country: CH (occurrence: CH)
  Receive Date: 20130723
  Receipt Date: 20130723
  Transmission Date: 20140515
  Serious: Yes (Other)
  Sender: FDA-Public Use
  Company Number: CH-009507513-1307CHN011363

PATIENT
  Age: 55 Year
  Sex: Male

DRUGS (1)
  1. SYCREST [Suspect]
     Indication: MANIA
     Dosage: 10 MG, BID
     Route: 060

REACTIONS (2)
  - Type 1 diabetes mellitus [Not Recovered/Not Resolved]
  - Urinary incontinence [Not Recovered/Not Resolved]
